FAERS Safety Report 5291411-3 (Version None)
Quarter: 2007Q2

REPORT INFORMATION
  Report Type: 
  Country: None (occurrence: None)
  Receive Date: 20070402
  Receipt Date: 20070315
  Transmission Date: 20071010
  Serious: Yes (Hospitalization, Other)
  Sender: FDA-Public Use
  Company Number: PHBS2004CA13818

PATIENT
  Age: 35 Year
  Sex: Female

DRUGS (3)
  1. VISUDYNE [Suspect]
     Indication: EYE DEGENERATIVE DISORDER
     Dates: start: 20040812
  2. VISUDYNE [Suspect]
     Indication: MYOPIA
     Dates: start: 20040812
  3. CLINDAMYCIN [Concomitant]

REACTIONS (6)
  - ANTEPARTUM HAEMORRHAGE [None]
  - CAESAREAN SECTION [None]
  - DRUG EXPOSURE DURING PREGNANCY [None]
  - FOETAL MALPOSITION [None]
  - PREMATURE RUPTURE OF MEMBRANES [None]
  - VAGINAL HAEMORRHAGE [None]
